FAERS Safety Report 7256292-7 (Version None)
Quarter: 2011Q1

REPORT INFORMATION
  Report Type: 
  Country: None (occurrence: None)
  Receive Date: 20110129
  Receipt Date: 20100520
  Transmission Date: 20110831
  Serious: No
  Sender: FDA-Public Use
  Company Number: US-ABBOTT-10P-163-0646550-00

PATIENT
  Sex: Female

DRUGS (1)
  1. HUMIRA [Suspect]
     Indication: PSORIASIS
     Route: 058
     Dates: start: 20080801, end: 20100521

REACTIONS (4)
  - EAR PAIN [None]
  - DYSPNOEA EXERTIONAL [None]
  - OROPHARYNGEAL PAIN [None]
  - DYSPNOEA [None]
